FAERS Safety Report 21179782 (Version 1)
Quarter: 2022Q3

REPORT INFORMATION
  Report Type: Spontaneous
  Country: US (occurrence: None)
  Receive Date: 20220805
  Receipt Date: 20220805
  Transmission Date: 20221027
  Serious: Yes (Hospitalization)
  Sender: FDA-Public Use
  Company Number: None

PATIENT
  Age: 75 Year
  Sex: Male

DRUGS (1)
  1. RIVAROXABAN [Suspect]
     Active Substance: RIVAROXABAN
     Dosage: FREQUENCY : DAILY;?
     Route: 048
     Dates: start: 20190702

REACTIONS (13)
  - Haematemesis [None]
  - Oesophagitis [None]
  - Syncope [None]
  - Syncope [None]
  - Pancytopenia [None]
  - Pleuritic pain [None]
  - Asthenia [None]
  - Gastrooesophageal reflux disease [None]
  - Vomiting [None]
  - Hepatic steatosis [None]
  - Cholelithiasis [None]
  - Alcohol use disorder [None]
  - Rib fracture [None]

NARRATIVE: CASE EVENT DATE: 20220727
